FAERS Safety Report 9242795 (Version 1)
Quarter: 2013Q2

REPORT INFORMATION
  Report Type: Spontaneous
  Country: FR (occurrence: FR)
  Receive Date: 20130419
  Receipt Date: 20130419
  Transmission Date: 20140414
  Serious: Yes (Hospitalization, Other)
  Sender: FDA-Public Use
  Company Number: FR-ELI_LILLY_AND_COMPANY-FR201304002084

PATIENT
  Age: 79 Year
  Sex: Female

DRUGS (11)
  1. CYMBALTA [Suspect]
     Dosage: 30 MG, UNKNOWN
     Route: 048
     Dates: end: 20120525
  2. EBIXA [Concomitant]
     Dosage: 20 MG, UNKNOWN
     Route: 065
     Dates: end: 20120525
  3. CERIS [Concomitant]
     Dosage: 20 MG, UNKNOWN
     Route: 065
     Dates: end: 20120525
  4. IMOVANE [Concomitant]
     Dosage: 7.5 MG, UNKNOWN
     Route: 065
     Dates: end: 20120525
  5. LYRICA [Concomitant]
     Dosage: 100 MG, BID
     Route: 065
  6. SKENAN [Concomitant]
     Dosage: 10 MG, UNKNOWN
     Route: 065
  7. NOOTROPYL [Concomitant]
     Dosage: UNK, UNKNOWN
     Route: 065
     Dates: end: 20120525
  8. SPECIAFOLDINE [Concomitant]
     Dosage: UNK, UNKNOWN
     Route: 065
  9. LEVOTHYROX [Concomitant]
     Dosage: 100 MG, UNKNOWN
     Route: 065
  10. FUROSEMIDE [Concomitant]
     Dosage: 20 MG, UNKNOWN
     Route: 065
  11. SPIRIVA [Concomitant]
     Dosage: 18 MG, UNKNOWN
     Route: 065
     Dates: end: 20120525

REACTIONS (2)
  - Chronic respiratory failure [Unknown]
  - Depressed level of consciousness [Recovering/Resolving]
